FAERS Safety Report 19933777 (Version 2)
Quarter: 2021Q4

REPORT INFORMATION
  Report Type: Spontaneous
  Country: DK (occurrence: DK)
  Receive Date: 20211008
  Receipt Date: 20211220
  Transmission Date: 20220304
  Serious: Yes (Hospitalization, Other)
  Sender: FDA-Public Use
  Company Number: DK-BRISTOL-MYERS SQUIBB COMPANY-BMS-2021-091299

PATIENT
  Age: 32 Year
  Sex: Female

DRUGS (2)
  1. NIVOLUMAB [Suspect]
     Active Substance: NIVOLUMAB
     Indication: Metastatic malignant melanoma
     Dosage: UNK
     Route: 065
  2. IPILIMUMAB [Suspect]
     Active Substance: IPILIMUMAB
     Indication: Metastatic malignant melanoma
     Dosage: UNK
     Route: 065

REACTIONS (12)
  - Diarrhoea [Unknown]
  - Pituitary enlargement [Unknown]
  - Large intestine infection [Unknown]
  - Immune-mediated enterocolitis [Unknown]
  - Abdominal distension [Unknown]
  - Gastrointestinal oedema [Unknown]
  - Abdominal pain upper [Unknown]
  - Metastases to central nervous system [Unknown]
  - Meningitis [Unknown]
  - Encephalitis [Unknown]
  - Headache [Unknown]
  - Pyrexia [Unknown]
